FAERS Safety Report 7363469-9 (Version None)
Quarter: 2011Q1

REPORT INFORMATION
  Report Type: 
  Country: None (occurrence: None)
  Receive Date: 20110321
  Receipt Date: 20110311
  Transmission Date: 20110831
  Serious: Yes (Disabling, Other)
  Sender: FDA-Public Use
  Company Number: ZA-ALLERGAN-1103585US

PATIENT
  Age: 54 Year

DRUGS (4)
  1. BIMATOPROST AND TIMOLOL MALEATE [Suspect]
     Indication: GLAUCOMA
  2. ZADITEN [Concomitant]
  3. COSOPT [Concomitant]
     Indication: GLAUCOMA
  4. COMBIGAN [Suspect]
     Indication: GLAUCOMA

REACTIONS (1)
  - BLEPHARITIS [None]
